FAERS Safety Report 21020834 (Version 2)
Quarter: 2022Q3

REPORT INFORMATION
  Report Type: Spontaneous
  Country: FR (occurrence: FR)
  Receive Date: 20220629
  Receipt Date: 20220708
  Transmission Date: 20221026
  Serious: No
  Sender: FDA-Public Use
  Company Number: FR-SAMSUNG BIOEPIS-SB-2022-14428

PATIENT
  Age: 34 Year
  Sex: Male

DRUGS (4)
  1. REMICADE [Suspect]
     Active Substance: INFLIXIMAB
     Indication: Immune reconstitution inflammatory syndrome associated tuberculosis
     Route: 041
  2. REMICADE [Suspect]
     Active Substance: INFLIXIMAB
     Dosage: D1, D15
     Route: 041
  3. MARAVIROC [Concomitant]
     Active Substance: MARAVIROC
     Indication: Immune reconstitution inflammatory syndrome associated tuberculosis
     Dosage: UNKNOWN
     Route: 065
  4. LOPINAVIR [Concomitant]
     Active Substance: LOPINAVIR
     Indication: Immune reconstitution inflammatory syndrome associated tuberculosis

REACTIONS (2)
  - Off label use [Unknown]
  - Therapeutic response unexpected [Unknown]
